FAERS Safety Report 7895640-1 (Version None)
Quarter: 2011Q4

REPORT INFORMATION
  Report Type: 
  Country: None (occurrence: None)
  Receive Date: 20111106
  Receipt Date: 20110830
  Transmission Date: 20120403
  Serious: No
  Sender: FDA-Public Use
  Company Number: US-AMGEN-USASP2011044263

PATIENT
  Age: 65 Year
  Sex: Female
  Weight: 63.492 kg

DRUGS (3)
  1. ENBREL [Suspect]
     Dosage: 50 MG, QWK
     Route: 058
     Dates: start: 20110901
  2. HYDROXYCHLOROQUINE SULFATE [Concomitant]
  3. GLYBURIDE (MICRONIZED) [Concomitant]
     Dosage: 5 MG, UNK

REACTIONS (1)
  - DRUG DOSE OMISSION [None]
